FAERS Safety Report 7931399-7 (Version None)
Quarter: 2011Q4

REPORT INFORMATION
  Report Type: 
  Country: None (occurrence: None)
  Receive Date: 20111121
  Receipt Date: 20111118
  Transmission Date: 20120403
  Serious: Yes (Other)
  Sender: FDA-Public Use
  Company Number: ZA-PFIZER INC-2011283951

PATIENT

DRUGS (1)
  1. CELEBREX [Suspect]
     Route: 048

REACTIONS (1)
  - URINARY TRACT INFECTION [None]
